FAERS Safety Report 17049599 (Version 1)
Quarter: 2019Q4

REPORT INFORMATION
  Report Type: Report from Study
  Country: US (occurrence: US)
  Receive Date: 20191119
  Receipt Date: 20191119
  Transmission Date: 20200122
  Serious: Yes (Other)
  Sender: FDA-Public Use
  Company Number: US-GILEAD-2019-0438020

PATIENT
  Sex: Male

DRUGS (6)
  1. AZTREONAM LYSINE [Suspect]
     Active Substance: AZTREONAM LYSINE
     Indication: CYSTIC FIBROSIS
     Dosage: 75 MG, TID
     Route: 055
     Dates: start: 20180201
  2. TOBI PODHALER [Concomitant]
     Active Substance: TOBRAMYCIN
  3. ORKAMBI [Concomitant]
     Active Substance: IVACAFTOR\LUMACAFTOR
  4. PULMOSAL [Concomitant]
     Active Substance: SODIUM CHLORIDE
  5. PULMOZYME [Concomitant]
     Active Substance: DORNASE ALFA
  6. BETHKIS [Concomitant]
     Active Substance: TOBRAMYCIN

REACTIONS (1)
  - Central venous catheterisation [Unknown]
